FAERS Safety Report 6575161-9 (Version None)
Quarter: 2010Q1

REPORT INFORMATION
  Report Type: 
  Country: None (occurrence: None)
  Receive Date: 20100209
  Receipt Date: 20100127
  Transmission Date: 20100710
  Serious: Yes (Other)
  Sender: FDA-Public Use
  Company Number: JP-BAYER-201010439BYL

PATIENT
  Age: 85 Year
  Sex: Male
  Weight: 59 kg

DRUGS (5)
  1. NEXAVAR [Suspect]
     Indication: RENAL CELL CARCINOMA
     Dosage: UNIT DOSE: 200 MG
     Route: 048
     Dates: start: 20090611, end: 20090727
  2. NEXAVAR [Suspect]
     Dosage: UNIT DOSE: 200 MG
     Route: 048
     Dates: start: 20090803, end: 20090914
  3. NEXAVAR [Suspect]
     Dosage: UNIT DOSE: 200 MG
     Route: 048
     Dates: start: 20091019, end: 20091116
  4. BASEN [Concomitant]
     Dosage: TOTAL DAILY DOSE: 0.9 MG
     Route: 048
  5. PARIET [Concomitant]
     Route: 048
     Dates: start: 20090520

REACTIONS (1)
  - HEPATIC FUNCTION ABNORMAL [None]
